FAERS Safety Report 5399583-7 (Version None)
Quarter: 2007Q3

REPORT INFORMATION
  Report Type: 
  Country: None (occurrence: None)
  Receive Date: 20070727
  Receipt Date: 20070724
  Transmission Date: 20080115
  Serious: Yes (Other)
  Sender: FDA-Public Use
  Company Number: US-BOEHRINGER INGELHEIM PHARMACEUTICALS, INC.-2006-BP-14735BP

PATIENT
  Sex: Male

DRUGS (12)
  1. SPIRIVA [Suspect]
     Indication: CHRONIC OBSTRUCTIVE PULMONARY DISEASE
     Route: 055
     Dates: start: 20060201, end: 20061122
  2. SPIRIVA [Suspect]
     Indication: ASTHMA
  3. COREG [Concomitant]
  4. TRICOR [Concomitant]
  5. DIOVAN [Concomitant]
  6. ASPIRIN [Concomitant]
  7. LIPITOR [Concomitant]
  8. ASMANEX TWISTHALER [Concomitant]
     Dates: start: 20070201
  9. LOTEMAX [Concomitant]
  10. ISOSORBIDE DINITRATE [Concomitant]
  11. PRILOSEC [Concomitant]
     Indication: REGURGITATION
  12. FORADIL [Concomitant]
     Indication: ASTHMA
     Dates: start: 20061101

REACTIONS (5)
  - BLINDNESS [None]
  - CORNEAL OEDEMA [None]
  - EYE PAIN [None]
  - INTRAOCULAR PRESSURE INCREASED [None]
  - OPTIC NERVE DISORDER [None]
